FAERS Safety Report 9069167 (Version 1)
Quarter: 2013Q1

REPORT INFORMATION
  Report Type: Spontaneous
  Country: US (occurrence: US)
  Receive Date: 20130215
  Receipt Date: 20130215
  Transmission Date: 20140127
  Serious: Yes (Death)
  Sender: FDA-Public Use
  Company Number: US-BANPHARM-20130795

PATIENT
  Age: 61 Year
  Sex: Female

DRUGS (1)
  1. DIPHENHYDRAMINE AND ACETAMINOPHEN UNKNOWN PRODUCT [Suspect]
     Route: 048

REACTIONS (2)
  - Medication error [Fatal]
  - Death [Fatal]
